FAERS Safety Report 4489009-X (Version None)
Quarter: 2004Q4

REPORT INFORMATION
  Report Type: 
  Country: None (occurrence: None)
  Receive Date: 20041029
  Receipt Date: 20040909
  Transmission Date: 20050328
  Serious: Yes (Death)
  Sender: FDA-Public Use
  Company Number: JP-BRISTOL-MYERS SQUIBB COMPANY-12703153

PATIENT
  Age: 69 Year
  Sex: Male

DRUGS (4)
  1. MITOMYCIN [Suspect]
     Indication: METASTASES TO LIVER
     Dosage: 21 DOSES INITIAL DOSE: 29-NOV-2002
     Route: 013
     Dates: start: 20030521, end: 20030521
  2. FLUOROURACIL [Suspect]
     Indication: METASTASES TO LIVER
     Dosage: 21 DOSES INITIAL DOSE: 29-NOV-2002
     Route: 013
     Dates: start: 20030521, end: 20030521
  3. FARMORUBICIN [Suspect]
     Indication: METASTASES TO LIVER
     Dosage: 21 DOSES INITIAL DOSE: 29-NOV-2002
     Route: 013
     Dates: start: 20030521, end: 20030521
  4. TS-1 [Suspect]
     Indication: METASTASES TO LIVER
     Dosage: 03JUN2003-17AUG2003 (17 REMOVED DUE TO HARD CHECK ON RUNNING RULES; DAY OF DEATH NOT REPORTED)
     Route: 048
     Dates: start: 20030603, end: 20030811

REACTIONS (2)
  - CHOLANGITIS SCLEROSING [None]
  - HEPATIC FAILURE [None]
